FAERS Safety Report 22589336 (Version 1)
Quarter: 2023Q2

REPORT INFORMATION
  Report Type: Spontaneous
  Country: JP (occurrence: JP)
  Receive Date: 20230612
  Receipt Date: 20230612
  Transmission Date: 20230721
  Serious: Yes (Disabling, Other)
  Sender: FDA-Public Use
  Company Number: JP-PFIZER INC-PV202300036327

PATIENT
  Age: 73 Year
  Sex: Female
  Weight: 58.6 kg

DRUGS (11)
  1. XELJANZ [Suspect]
     Active Substance: TOFACITINIB CITRATE
     Indication: Rheumatoid arthritis
     Dosage: 5 MG, 2X/DAY
     Route: 048
     Dates: start: 20230214, end: 20230222
  2. METHOTREXATE SODIUM [Concomitant]
     Active Substance: METHOTREXATE SODIUM
     Indication: Rheumatoid arthritis
     Dosage: 10 MG, WEEKLY
     Route: 048
     Dates: start: 201005
  3. FOLIC ACID [Concomitant]
     Active Substance: FOLIC ACID
     Indication: Rheumatoid arthritis
     Dosage: 5 MG, WEEKLY
     Route: 048
     Dates: start: 201006
  4. FOLIC ACID [Concomitant]
     Active Substance: FOLIC ACID
     Indication: Stomatitis
     Dosage: 10 MG(100MG 10%), DAILY
     Route: 048
     Dates: start: 20180907
  5. METHIMAZOLE [Concomitant]
     Active Substance: METHIMAZOLE
     Indication: Graves^ disease
     Dosage: 2.5 MG,  2DAYS, ONE DAY OFF
     Route: 048
     Dates: start: 20100519
  6. TELTHIA COMBINATION BP DSEP [Concomitant]
     Indication: Hypertension
     Dosage: 1TABLET, DAILY
     Route: 048
     Dates: start: 20191017
  7. PITAVASTATIN CALCIUM [Concomitant]
     Active Substance: PITAVASTATIN CALCIUM
     Indication: Dyslipidaemia
     Dosage: 1 MG, DAILY
     Route: 048
     Dates: start: 20170419
  8. FEBUXOSTAT [Concomitant]
     Active Substance: FEBUXOSTAT
     Indication: Hyperuricaemia
     Dosage: 10 MG, DAILY
     Route: 048
     Dates: start: 20210609
  9. MAGNESIUM OXIDE [Concomitant]
     Active Substance: MAGNESIUM OXIDE
     Indication: Constipation
     Dosage: 330 MG, DAILY
  10. FAMOTIDINE [Concomitant]
     Active Substance: FAMOTIDINE
     Indication: Prophylaxis
     Dosage: 10 MG, DAILY
     Route: 048
     Dates: start: 20220316
  11. HALCION [Concomitant]
     Active Substance: TRIAZOLAM
     Indication: Insomnia
     Dosage: 0.25 MG, DAILY
     Route: 048

REACTIONS (10)
  - Retinal artery occlusion [Not Recovered/Not Resolved]
  - Visual field defect [Not Recovered/Not Resolved]
  - Visual impairment [Recovered/Resolved]
  - Tremor [Unknown]
  - Dizziness [Recovered/Resolved]
  - Vertigo labyrinthine [Unknown]
  - Therapeutic product effect incomplete [Unknown]
  - Malaise [Unknown]
  - Palpitations [Unknown]
  - Dysstasia [Unknown]

NARRATIVE: CASE EVENT DATE: 20230215
